FAERS Safety Report 18400224 (Version 1)
Quarter: 2020Q4

REPORT INFORMATION
  Report Type: Spontaneous
  Country: US (occurrence: US)
  Receive Date: 20201019
  Receipt Date: 20201019
  Transmission Date: 20210114
  Serious: No
  Sender: FDA-Public Use
  Company Number: US-ALLERGAN-1940980US

PATIENT
  Sex: Female

DRUGS (4)
  1. VRAYLAR [Suspect]
     Active Substance: CARIPRAZINE
     Dosage: 1.5 UNK
     Route: 048
     Dates: start: 201904
  2. COUMADIN [Concomitant]
     Active Substance: WARFARIN SODIUM
     Indication: HEART VALVE REPLACEMENT
  3. VRAYLAR [Suspect]
     Active Substance: CARIPRAZINE
     Indication: BIPOLAR I DISORDER
     Dosage: 3 MG, QD
     Route: 048
     Dates: start: 201904
  4. VRAYLAR [Suspect]
     Active Substance: CARIPRAZINE
     Dosage: 4.5 UNK

REACTIONS (3)
  - Vomiting [Not Recovered/Not Resolved]
  - Nausea [Unknown]
  - Drug ineffective [Unknown]
